FAERS Safety Report 10056520 (Version 3)
Quarter: 2014Q2

REPORT INFORMATION
  Report Type: Spontaneous
  Country: IT (occurrence: IT)
  Receive Date: 20140403
  Receipt Date: 20140421
  Transmission Date: 20141212
  Serious: Yes (Hospitalization)
  Sender: FDA-Public Use
  Company Number: IT-SA-2014SA038590

PATIENT
  Age: 71 Year
  Sex: Female

DRUGS (4)
  1. LASIX [Suspect]
     Indication: BLOOD PRESSURE INCREASED
     Route: 048
     Dates: start: 20140205, end: 20140205
  2. SIMVASTATIN [Concomitant]
  3. ENAPREN [Concomitant]
     Dosage: STRENGTH: 5 MG
     Route: 048
  4. CARDIRENE [Concomitant]
     Dosage: STRENGTH: 75 MG
     Route: 048

REACTIONS (1)
  - Syncope [Recovered/Resolved]
